FAERS Safety Report 10664660 (Version 2)
Quarter: 2015Q1

REPORT INFORMATION
  Report Type: Spontaneous
  Country: IE (occurrence: IE)
  Receive Date: 20141219
  Receipt Date: 20150226
  Transmission Date: 20150720
  Serious: Yes (Hospitalization)
  Sender: FDA-Public Use
  Company Number: IE-PFIZER INC-2014350105

PATIENT
  Age: 68 Year
  Sex: Male

DRUGS (2)
  1. SUTENT [Suspect]
     Active Substance: SUNITINIB MALATE
     Dosage: 50 MG, UNIT DOSE 2/1 SCHEDULE
  2. SUTENT [Suspect]
     Active Substance: SUNITINIB MALATE
     Indication: METASTATIC RENAL CELL CARCINOMA
     Dosage: 37.5 MG,UNIT DOSE 2/1 SCHEDULE

REACTIONS (8)
  - Transient ischaemic attack [Unknown]
  - Metastatic renal cell carcinoma [Unknown]
  - Cerebrovascular accident [Unknown]
  - Disease progression [Unknown]
  - Muscular weakness [Unknown]
  - Dysarthria [Unknown]
  - Aphasia [Unknown]
  - Seizure [Unknown]
